FAERS Safety Report 10406273 (Version 1)
Quarter: 2014Q3

REPORT INFORMATION
  Report Type: Spontaneous
  Country: US (occurrence: None)
  Receive Date: 20140822
  Receipt Date: 20140822
  Transmission Date: 20150326
  Serious: Yes (Hospitalization)
  Sender: FDA-Public Use
  Company Number: None

PATIENT
  Age: 63 Year
  Sex: Male
  Weight: 101 kg

DRUGS (15)
  1. NIFEDIPINE. [Concomitant]
     Active Substance: NIFEDIPINE
  2. ZOSYN [Concomitant]
     Active Substance: PIPERACILLIN SODIUM\TAZOBACTAM SODIUM
  3. PLAVIX [Concomitant]
     Active Substance: CLOPIDOGREL BISULFATE
  4. NORCO [Concomitant]
     Active Substance: ACETAMINOPHEN\HYDROCODONE BITARTRATE
  5. NEUROPENTIN [Concomitant]
  6. GABAPENTIN. [Concomitant]
     Active Substance: GABAPENTIN
  7. COUMADIN [Concomitant]
     Active Substance: WARFARIN SODIUM
  8. CARVEDILOL. [Concomitant]
     Active Substance: CARVEDILOL
  9. MORPHINE [Concomitant]
     Active Substance: MORPHINE
  10. VANCOMYCIN [Suspect]
     Active Substance: VANCOMYCIN
     Dosage: 1750 MG X1 5/3;  1GM Q12  5/4 -} 5/5?850MG Q12 HOURS 5/5 -} 5/7    850MG  Q12  5/7 -} 5/
     Route: 042
  11. HEPARIN [Concomitant]
     Active Substance: HEPARIN SODIUM
  12. CONTRAST AGENT [Suspect]
     Active Substance: UNSPECIFIED INGREDIENT
     Indication: ANGIOGRAM
     Dates: start: 20140505
  13. PERCOCET [Concomitant]
     Active Substance: ACETAMINOPHEN\OXYCODONE HYDROCHLORIDE
  14. LOVENOX [Concomitant]
     Active Substance: ENOXAPARIN SODIUM
  15. PROPHYLACK [Concomitant]

REACTIONS (1)
  - Renal impairment [None]

NARRATIVE: CASE EVENT DATE: 20140505
